FAERS Safety Report 9600989 (Version 1)
Quarter: 2013Q4

REPORT INFORMATION
  Report Type: Spontaneous
  Country: US (occurrence: US)
  Receive Date: 20131004
  Receipt Date: 20131004
  Transmission Date: 20140711
  Serious: No
  Sender: FDA-Public Use
  Company Number: US-AMGEN-USASP2013038957

PATIENT
  Age: 62 Year
  Sex: Male

DRUGS (8)
  1. ENBREL [Suspect]
     Indication: PRODUCT USED FOR UNKNOWN INDICATION
     Dosage: 50 MG, QWK
     Route: 058
  2. METHOTREXATE [Concomitant]
     Dosage: 50 MG/2 ML
  3. FOLIC ACID [Concomitant]
     Dosage: UNK
  4. CELEBREX [Concomitant]
     Dosage: 200 MG, UNK
  5. AMITRIPTYLIN [Concomitant]
     Dosage: 10 MG, UNK
  6. TRAMADOL HCL [Concomitant]
     Dosage: 50 MG, UNK
  7. HYDROXYCHLOROQUINE [Concomitant]
     Dosage: 200 MG, UNK
  8. DEPO-MEDROL [Concomitant]
     Dosage: 20 MG/ML, UNK

REACTIONS (2)
  - Injection site bruising [Unknown]
  - Injection site discolouration [Unknown]
